FAERS Safety Report 10048977 (Version 1)
Quarter: 2014Q1

REPORT INFORMATION
  Report Type: Spontaneous
  Country: BE (occurrence: BE)
  Receive Date: 20140331
  Receipt Date: 20140331
  Transmission Date: 20141002
  Serious: Yes (Hospitalization)
  Sender: FDA-Public Use
  Company Number: BE-MERCK-1403BEL014227

PATIENT
  Age: 58 Year
  Sex: Male
  Weight: 100 kg

DRUGS (4)
  1. JANUVIA [Suspect]
     Indication: TYPE 2 DIABETES MELLITUS
     Dosage: 100 MG, QD
     Route: 048
     Dates: start: 2011
  2. METFORMAX [Concomitant]
     Indication: TYPE 2 DIABETES MELLITUS
     Dosage: 850 MG, BID
     Route: 048
     Dates: start: 2010
  3. CONTRAMAL [Concomitant]
     Indication: PAIN
     Dosage: 100 MG, QD
     Route: 048
     Dates: start: 2012
  4. NAPROSYNE [Concomitant]
     Indication: ARTHRALGIA
     Dosage: 500 MG, BID
     Route: 048
     Dates: start: 2012

REACTIONS (1)
  - Pancreatic carcinoma [Recovering/Resolving]
